FAERS Safety Report 9222061 (Version 1)
Quarter: 2013Q2

REPORT INFORMATION
  Report Type: Spontaneous
  Country: US (occurrence: US)
  Receive Date: 20130410
  Receipt Date: 20130410
  Transmission Date: 20140414
  Serious: No
  Sender: FDA-Public Use
  Company Number: US-PFIZER INC-2013108247

PATIENT
  Sex: Male

DRUGS (1)
  1. SUTENT [Suspect]
     Dosage: UNK

REACTIONS (4)
  - Oropharyngeal pain [Unknown]
  - Tracheal pain [Unknown]
  - Odynophagia [Unknown]
  - Painful respiration [Unknown]
